FAERS Safety Report 7078745-7 (Version None)
Quarter: 2010Q4

REPORT INFORMATION
  Report Type: 
  Country: None (occurrence: None)
  Receive Date: 20101102
  Receipt Date: 20101027
  Transmission Date: 20110411
  Serious: Yes (Death, Hospitalization)
  Sender: FDA-Public Use
  Company Number: US-PFIZER INC-2005104340

PATIENT
  Sex: Female
  Weight: 53.968 kg

DRUGS (6)
  1. SUNITINIB MALATE [Suspect]
     Indication: GASTROINTESTINAL STROMAL TUMOUR
     Dosage: 50 MG, 1X/DAY
     Route: 048
     Dates: start: 20050621, end: 20050718
  2. PROTONIX [Concomitant]
     Route: 048
     Dates: start: 20040901
  3. LORTAB [Concomitant]
     Route: 048
     Dates: start: 20040901
  4. PROMETHAZINE [Concomitant]
     Route: 048
     Dates: start: 20040601
  5. OGEN [Concomitant]
     Route: 048
  6. DURAGESIC-100 [Concomitant]
     Route: 062
     Dates: start: 20050621

REACTIONS (1)
  - PULMONARY EMBOLISM [None]
